FAERS Safety Report 23439842 (Version 1)
Quarter: 2024Q1

REPORT INFORMATION
  Report Type: Spontaneous
  Country: US (occurrence: US)
  Receive Date: 20240124
  Receipt Date: 20240124
  Transmission Date: 20240410
  Serious: Yes (Other)
  Sender: FDA-Public Use
  Company Number: US-AMGEN-USASP2024010610

PATIENT
  Sex: Female

DRUGS (1)
  1. PROLIA [Suspect]
     Active Substance: DENOSUMAB
     Indication: Product used for unknown indication
     Dosage: UNK, Q6MO (DISCONTINUED ABOUT 2 YEARS AGO)
     Route: 065

REACTIONS (5)
  - Spinal compression fracture [Recovering/Resolving]
  - Osteonecrosis of jaw [Not Recovered/Not Resolved]
  - Osteoporotic fracture [Unknown]
  - Tooth extraction [Unknown]
  - Temporomandibular joint syndrome [Unknown]
